FAERS Safety Report 13842985 (Version 3)
Quarter: 2017Q3

REPORT INFORMATION
  Report Type: Report from Study
  Country: None (occurrence: NZ)
  Receive Date: 20170808
  Receipt Date: 20170818
  Transmission Date: 20171127
  Serious: Yes (Other)
  Sender: FDA-Public Use
  Company Number: NZ-ABBVIE-17P-118-1952096-00

PATIENT
  Age: 10 Year
  Sex: Female
  Weight: 45 kg

DRUGS (4)
  1. PENTASA [Concomitant]
     Active Substance: MESALAMINE
     Indication: PRODUCT USED FOR UNKNOWN INDICATION
  2. AZATHIOPRINE. [Concomitant]
     Active Substance: AZATHIOPRINE
     Indication: PRODUCT USED FOR UNKNOWN INDICATION
  3. HUMIRA [Suspect]
     Active Substance: ADALIMUMAB
     Route: 058
     Dates: start: 201409
  4. HUMIRA [Suspect]
     Active Substance: ADALIMUMAB
     Indication: CROHN^S DISEASE
     Route: 058
     Dates: start: 200910, end: 201409

REACTIONS (9)
  - Anorectal disorder [Unknown]
  - Sepsis [Unknown]
  - Small intestinal obstruction [Recovered/Resolved]
  - Drug effect incomplete [Recovered/Resolved]
  - Gastrointestinal stoma complication [Unknown]
  - Gastrointestinal stoma complication [Unknown]
  - Ileostomy [Unknown]
  - Anal abscess [Unknown]
  - Social problem [Unknown]

NARRATIVE: CASE EVENT DATE: 201004
